FAERS Safety Report 25029462 (Version 2)
Quarter: 2025Q1

REPORT INFORMATION
  Report Type: Report from Study
  Country: US (occurrence: US)
  Receive Date: 20250303
  Receipt Date: 20250327
  Transmission Date: 20250408
  Serious: Yes (Other)
  Sender: AMGEN
  Company Number: US-AMGEN-USASL2025038813

PATIENT
  Age: 60 Year
  Sex: Male

DRUGS (6)
  1. NPLATE [Suspect]
     Active Substance: ROMIPLOSTIM
     Indication: Immune thrombocytopenia
     Route: 065
     Dates: start: 20230606
  2. NPLATE [Suspect]
     Active Substance: ROMIPLOSTIM
     Route: 065
  3. NPLATE [Suspect]
     Active Substance: ROMIPLOSTIM
     Route: 065
  4. NPLATE [Suspect]
     Active Substance: ROMIPLOSTIM
     Route: 065
     Dates: end: 20231107
  5. NPLATE [Suspect]
     Active Substance: ROMIPLOSTIM
     Dosage: UNK UNK, QWK
     Route: 065
     Dates: start: 202403
  6. PREDNISONE [Suspect]
     Active Substance: PREDNISONE
     Indication: Product used for unknown indication
     Dosage: 60 MILLIGRAM, QD
     Route: 065
     Dates: start: 20210209

REACTIONS (5)
  - Neuropathy peripheral [Not Recovered/Not Resolved]
  - Platelet count decreased [Unknown]
  - Fatigue [Unknown]
  - Pain [Unknown]
  - Epistaxis [Unknown]

NARRATIVE: CASE EVENT DATE: 20210302
